FAERS Safety Report 16819468 (Version 2)
Quarter: 2020Q2

REPORT INFORMATION
  Report Type: Spontaneous
  Country: US (occurrence: US)
  Receive Date: 20190917
  Receipt Date: 20200404
  Transmission Date: 20200713
  Serious: Yes (Hospitalization, Other)
  Sender: FDA-Public Use
  Company Number: US-TEVA-2019-US-1088097

PATIENT
  Sex: Female

DRUGS (18)
  1. LEVOTHYROXINE. [Concomitant]
     Active Substance: LEVOTHYROXINE
  2. LORATADINE. [Concomitant]
     Active Substance: LORATADINE
  3. DIPHENHYDRAMINE. [Concomitant]
     Active Substance: DIPHENHYDRAMINE
  4. HUMALOG [Concomitant]
     Active Substance: INSULIN LISPRO
  5. TRESIBA [Concomitant]
     Active Substance: INSULIN DEGLUDEC
  6. LISINOPRIL. [Concomitant]
     Active Substance: LISINOPRIL
  7. MECLIZINE [Concomitant]
     Active Substance: MECLIZINE HYDROCHLORIDE
  8. OMEPRAZOLE. [Concomitant]
     Active Substance: OMEPRAZOLE
  9. SYNRIBO [Suspect]
     Active Substance: OMACETAXINE MEPESUCCINATE
     Indication: CHRONIC MYELOID LEUKAEMIA
     Dosage: 2.4MG/0.7ML, FOR 14 DAYS.
     Dates: start: 20190704
  10. FLONASE [Concomitant]
     Active Substance: FLUTICASONE PROPIONATE
  11. NEURONTIN [Concomitant]
     Active Substance: GABAPENTIN
  12. ONDANSETRON [Concomitant]
     Active Substance: ONDANSETRON
  13. TRESIBA [Concomitant]
     Active Substance: INSULIN DEGLUDEC
  14. LIDOCAINE. [Concomitant]
     Active Substance: LIDOCAINE
  15. MAALOX ANTACID [Concomitant]
     Active Substance: ALUMINUM HYDROXIDE\DIMETHICONE\MAGNESIUM HYDROXIDE
  16. TASIGNA [Concomitant]
     Active Substance: NILOTINIB
  17. COMPAZINE [Concomitant]
     Active Substance: PROCHLORPERAZINE MALEATE
  18. ALBUTEROL. [Concomitant]
     Active Substance: ALBUTEROL

REACTIONS (6)
  - Platelet count increased [Unknown]
  - Hospitalisation [Unknown]
  - Asthma [Unknown]
  - Therapy interrupted [Unknown]
  - Nasopharyngitis [Unknown]
  - Cough [Unknown]
